FAERS Safety Report 25265237 (Version 2)
Quarter: 2025Q2

REPORT INFORMATION
  Report Type: Spontaneous
  Country: JP (occurrence: JP)
  Receive Date: 20250502
  Receipt Date: 20250616
  Transmission Date: 20250716
  Serious: Yes (Hospitalization, Other)
  Sender: MERCK SHARP & DOHME LLC
  Company Number: JP-009507513-2281161

PATIENT
  Age: 6 Decade
  Sex: Female

DRUGS (4)
  1. KEYTRUDA [Suspect]
     Active Substance: PEMBROLIZUMAB
     Indication: Cervix carcinoma stage IV
     Route: 041
     Dates: start: 20250402
  2. BEVACIZUMAB [Concomitant]
     Active Substance: BEVACIZUMAB
     Route: 041
     Dates: start: 20250402
  3. CARBOPLATIN [Concomitant]
     Active Substance: CARBOPLATIN
     Route: 041
     Dates: start: 20250402
  4. PACLITAXEL [Concomitant]
     Active Substance: PACLITAXEL
     Route: 041
     Dates: start: 20250402

REACTIONS (5)
  - Radiation proctitis [Unknown]
  - Large intestinal ulcer perforation [Unknown]
  - Immune-mediated enterocolitis [Recovered/Resolved]
  - Vaginal fistula [Unknown]
  - Diarrhoea [Recovered/Resolved]

NARRATIVE: CASE EVENT DATE: 20250412
